FAERS Safety Report 6841534-X (Version None)
Quarter: 2010Q3

REPORT INFORMATION
  Report Type: 
  Country: None (occurrence: None)
  Receive Date: 20100714
  Receipt Date: 20070709
  Transmission Date: 20110219
  Serious: No
  Sender: FDA-Public Use
  Company Number: US-PFIZER INC-2007058331

PATIENT
  Age: 67 Year
  Sex: Female
  Weight: 72.6 kg

DRUGS (17)
  1. CHANTIX [Suspect]
     Indication: SMOKING CESSATION THERAPY
     Route: 048
     Dates: start: 20070629
  2. PROTONIX [Concomitant]
     Indication: ABDOMINAL TENDERNESS
  3. LOPID [Concomitant]
  4. WARFARIN SODIUM [Concomitant]
  5. DILTIAZEM [Concomitant]
  6. ALLOPURINOL [Concomitant]
  7. PRAVACHOL [Concomitant]
  8. SERTRALINE HCL [Concomitant]
  9. GLIPIZIDE [Concomitant]
  10. DIGITEK [Concomitant]
  11. LASIX [Concomitant]
  12. ISOSORBIDE [Concomitant]
  13. SPIRIVA [Concomitant]
  14. ADVAIR DISKUS 100/50 [Concomitant]
  15. PARDALE [Concomitant]
  16. FLEXERIL [Concomitant]
  17. NEURONTIN [Concomitant]

REACTIONS (1)
  - NAUSEA [None]
